FAERS Safety Report 7822271-1 (Version None)
Quarter: 2011Q4

REPORT INFORMATION
  Report Type: 
  Country: None (occurrence: None)
  Receive Date: 20111018
  Receipt Date: 20110725
  Transmission Date: 20120403
  Serious: No
  Sender: FDA-Public Use
  Company Number: US-ASTRAZENECA-2011SE44579

PATIENT
  Age: 82 Year
  Sex: Female

DRUGS (2)
  1. VENTOLIN [Concomitant]
  2. SYMBICORT [Suspect]
     Indication: ASTHMA
     Dosage: 320 MCG BID / 80/4.5, AS TWO PUFFS TWICE A DAY
     Route: 055

REACTIONS (3)
  - FEELING ABNORMAL [None]
  - HEADACHE [None]
  - PARAESTHESIA [None]
